FAERS Safety Report 10456831 (Version 1)
Quarter: 2014Q3

REPORT INFORMATION
  Report Type: Spontaneous
  Country: US (occurrence: US)
  Receive Date: 20140916
  Receipt Date: 20140916
  Transmission Date: 20150326
  Serious: Yes (Death)
  Sender: FDA-Public Use
  Company Number: US-SA-2014SA099828

PATIENT

DRUGS (2)
  1. AUVI-Q [Suspect]
     Active Substance: EPINEPHRINE
     Indication: RESPIRATORY DISORDER
     Route: 065
  2. AUVI-Q [Suspect]
     Active Substance: EPINEPHRINE
     Indication: RESPIRATORY DISORDER
     Route: 065

REACTIONS (1)
  - Death [Fatal]
